FAERS Safety Report 17874121 (Version 1)
Quarter: 2020Q2

REPORT INFORMATION
  Report Type: Spontaneous
  Country: US (occurrence: US)
  Receive Date: 20200609
  Receipt Date: 20200609
  Transmission Date: 20200714
  Serious: No
  Sender: FDA-Public Use
  Company Number: US-AUROBINDO-AUR-APL-2019-054492

PATIENT
  Sex: Male

DRUGS (1)
  1. VENLAFAXINE HYDROCHLORIDE EXTENDED-RELEASE CAPSULES 75MG [Suspect]
     Active Substance: VENLAFAXINE HYDROCHLORIDE
     Indication: DEPRESSION
     Dosage: UNK, ONE FOUR TIMES A WEEK
     Route: 065

REACTIONS (5)
  - Therapeutic product effect incomplete [Recovered/Resolved]
  - Product substitution issue [Recovered/Resolved]
  - Mood altered [Recovered/Resolved]
  - Depression [Recovered/Resolved]
  - Malaise [Recovered/Resolved]
